FAERS Safety Report 8267961-4 (Version None)
Quarter: 2012Q2

REPORT INFORMATION
  Report Type: 
  Country: None (occurrence: None)
  Receive Date: 20120409
  Receipt Date: 20120404
  Transmission Date: 20120825
  Serious: Yes (Death, Hospitalization, Other)
  Sender: FDA-Public Use
  Company Number: PHHY2012PH029650

PATIENT
  Sex: Female

DRUGS (1)
  1. TASIGNA [Suspect]
     Indication: CHRONIC MYELOID LEUKAEMIA
     Dosage: 800 MG, DAILY
     Route: 048
     Dates: start: 20080617, end: 20120101

REACTIONS (8)
  - NO THERAPEUTIC RESPONSE [None]
  - SEPSIS [None]
  - CHRONIC MYELOID LEUKAEMIA [None]
  - INFECTION [None]
  - PYREXIA [None]
  - HAEMORRHAGE [None]
  - NEOPLASM MALIGNANT [None]
  - HEADACHE [None]
